FAERS Safety Report 6480578-7 (Version None)
Quarter: 2009Q4

REPORT INFORMATION
  Report Type: 
  Country: None (occurrence: None)
  Receive Date: 20091123
  Receipt Date: 20090821
  Transmission Date: 20100525
  Serious: Yes (Hospitalization)
  Sender: FDA-Public Use
  Company Number: 8050042

PATIENT
  Age: 19 Year
  Sex: Female
  Weight: 46.6 kg

DRUGS (2)
  1. CIMZIA [Suspect]
     Indication: CROHN'S DISEASE
     Dosage: 400 MG SC
     Route: 058
     Dates: start: 20090428
  2. LOMOTIL [Concomitant]

REACTIONS (1)
  - CROHN'S DISEASE [None]
